FAERS Safety Report 9865964 (Version 2)
Quarter: 2014Q1

REPORT INFORMATION
  Report Type: Spontaneous
  Country: US (occurrence: US)
  Receive Date: 20140203
  Receipt Date: 20140203
  Transmission Date: 20141002
  Serious: No
  Sender: FDA-Public Use
  Company Number: US-ALLERGAN-1313194US

PATIENT
  Age: 82 Year
  Sex: Male

DRUGS (8)
  1. RESTASIS [Suspect]
     Indication: DRY EYE
     Dosage: 2 GTT, BID
     Route: 047
  2. REFRESH TEARS [Concomitant]
     Indication: DRY EYE
     Dosage: 2 GTT 4-5 TIMES DAILY
     Route: 047
  3. AMBIEN [Concomitant]
     Indication: INSOMNIA
     Dosage: 10 MG, QHS
     Route: 048
  4. SEROQUEL [Concomitant]
     Indication: INSOMNIA
     Dosage: LOW DOSE
     Route: 048
  5. NORTRIPTYLINE [Concomitant]
     Indication: INSOMNIA
     Dosage: 10 MG, UNK
     Route: 048
  6. XANAX [Concomitant]
     Indication: ANXIETY
     Dosage: 0.5 MG, PRN
     Route: 048
  7. CARTIA XT [Concomitant]
     Indication: CORONARY ARTERY BYPASS
     Dosage: UNK UNK, QD
     Route: 048
  8. METOPROLOL [Concomitant]
     Indication: HYPERTENSION
     Dosage: UNK UNK, BID
     Route: 048

REACTIONS (4)
  - Abnormal sensation in eye [Not Recovered/Not Resolved]
  - Expired drug administered [Unknown]
  - Dry eye [Not Recovered/Not Resolved]
  - Therapeutic response decreased [Unknown]
